FAERS Safety Report 7591026-8 (Version None)
Quarter: 2011Q3

REPORT INFORMATION
  Report Type: 
  Country: None (occurrence: None)
  Receive Date: 20110705
  Receipt Date: 20110701
  Transmission Date: 20111222
  Serious: Yes (Life-Threatening)
  Sender: FDA-Public Use
  Company Number: JP-ASTRAZENECA-2011SE39626

PATIENT
  Age: 65 Year
  Sex: Male

DRUGS (2)
  1. PREDNISONE [Concomitant]
     Indication: PERIARTHRITIS
     Route: 042
  2. LIDOCAINE [Suspect]
     Indication: PERIARTHRITIS
     Route: 042

REACTIONS (5)
  - CONVULSION [None]
  - UNRESPONSIVE TO STIMULI [None]
  - MIOSIS [None]
  - TOXICITY TO VARIOUS AGENTS [None]
  - DYSPNOEA [None]
